FAERS Safety Report 23679495 (Version 3)
Quarter: 2024Q3

REPORT INFORMATION
  Report Type: Spontaneous
  Country: US (occurrence: US)
  Receive Date: 20240327
  Receipt Date: 20240703
  Transmission Date: 20241016
  Serious: No
  Sender: TEVA
  Company Number: US-TEVA-VS-3165965

PATIENT
  Age: 56 Year
  Sex: Female

DRUGS (1)
  1. COPAXONE [Suspect]
     Active Substance: GLATIRAMER ACETATE
     Indication: Product used for unknown indication
     Dosage: TIME INTERVAL: 0.33333333 WEEKS
     Route: 065

REACTIONS (13)
  - Tremor [Recovered/Resolved]
  - Adverse drug reaction [Recovered/Resolved]
  - Gait disturbance [Recovered/Resolved]
  - Pain [Recovered/Resolved]
  - Product quality issue [Unknown]
  - Chills [Recovered/Resolved]
  - Back pain [Recovered/Resolved]
  - Dizziness [Recovered/Resolved]
  - Gait inability [Recovered/Resolved]
  - Flushing [Recovered/Resolved]
  - Chest pain [Recovered/Resolved]
  - Pain in extremity [Recovered/Resolved]
  - Administration site pain [Recovered/Resolved]

NARRATIVE: CASE EVENT DATE: 20230101
